FAERS Safety Report 6882258-2 (Version None)
Quarter: 2010Q3

REPORT INFORMATION
  Report Type: 
  Country: None (occurrence: None)
  Receive Date: 20100729
  Receipt Date: 20100722
  Transmission Date: 20110219
  Serious: Yes (Hospitalization)
  Sender: FDA-Public Use
  Company Number: US-SANOFI-AVENTIS-2010SA025663

PATIENT
  Age: 70 Year
  Weight: 60.09 kg

DRUGS (7)
  1. MULTAQ [Suspect]
     Indication: ATRIAL FIBRILLATION
     Route: 048
     Dates: start: 20100413, end: 20100426
  2. MULTAQ [Suspect]
     Indication: CARDIAC ABLATION
     Route: 048
     Dates: start: 20100413, end: 20100426
  3. TOPROL-XL [Concomitant]
     Indication: ATRIAL FIBRILLATION
  4. WARFARIN [Concomitant]
     Indication: ATRIAL FIBRILLATION
  5. CARAFATE [Concomitant]
  6. TRIAMTERENE AND HYDROCHLOROTHIAZIDE [Concomitant]
  7. SYNTHROID [Concomitant]
     Indication: HYPOTHYROIDISM

REACTIONS (11)
  - ASTHENIA [None]
  - CARDIAC FAILURE [None]
  - DIZZINESS [None]
  - DYSPNOEA [None]
  - FATIGUE [None]
  - HYPOKALAEMIA [None]
  - HYPONATRAEMIA [None]
  - NAUSEA [None]
  - PALPITATIONS [None]
  - PLEURAL EFFUSION [None]
  - WEIGHT INCREASED [None]
